FAERS Safety Report 8331717-4 (Version None)
Quarter: 2012Q2

REPORT INFORMATION
  Report Type: 
  Country: None (occurrence: None)
  Receive Date: 20120502
  Receipt Date: 20110505
  Transmission Date: 20120825
  Serious: No
  Sender: FDA-Public Use
  Company Number: US-ASTRAZENECA-2011SE26977

PATIENT
  Age: 78 Year
  Sex: Female

DRUGS (2)
  1. ENTOCORT EC [Suspect]
     Route: 048
     Dates: start: 20110324
  2. ENTOCORT EC [Suspect]
     Indication: COLITIS MICROSCOPIC
     Route: 048

REACTIONS (3)
  - HAIR TEXTURE ABNORMAL [None]
  - OFF LABEL USE [None]
  - HIRSUTISM [None]
